FAERS Safety Report 18700838 (Version 1)
Quarter: 2021Q1

REPORT INFORMATION
  Report Type: Spontaneous
  Country: US (occurrence: US)
  Receive Date: 20210104
  Receipt Date: 20210104
  Transmission Date: 20210419
  Serious: Yes (Other)
  Sender: FDA-Public Use
  Company Number: None

PATIENT
  Age: 62 Year
  Sex: Female
  Weight: 60.75 kg

DRUGS (2)
  1. LOSARTAN. [Suspect]
     Active Substance: LOSARTAN
     Indication: HYPERTENSION
     Dosage: ?          QUANTITY:1 TABLET(S);?
     Route: 048
     Dates: start: 20201116, end: 20201117
  2. CHAMOMILE [Concomitant]
     Active Substance: CHAMOMILE

REACTIONS (6)
  - Feeling abnormal [None]
  - Muscle spasms [None]
  - Extrasystoles [None]
  - Dehydration [None]
  - Seizure [None]
  - Heart rate increased [None]

NARRATIVE: CASE EVENT DATE: 20201116
